FAERS Safety Report 10725905 (Version 1)
Quarter: 2015Q1

REPORT INFORMATION
  Report Type: Report from Study
  Country: BR (occurrence: BR)
  Receive Date: 20150121
  Receipt Date: 20150121
  Transmission Date: 20150721
  Serious: Yes (Hospitalization, Other)
  Sender: FDA-Public Use
  Company Number: BR-BAYER-2015-006806

PATIENT
  Age: 26 Year
  Sex: Female

DRUGS (2)
  1. CARBAMAZEPINE. [Concomitant]
     Active Substance: CARBAMAZEPINE
     Indication: NEURALGIA
     Dosage: 1 DF, QD
     Route: 048
  2. BETAFERON [Suspect]
     Active Substance: INTERFERON BETA-1B
     Indication: RELAPSING-REMITTING MULTIPLE SCLEROSIS
     Dosage: 1 ML, QOD
     Route: 058
     Dates: start: 201104, end: 201408

REACTIONS (7)
  - Dysphagia [Recovered/Resolved]
  - Pain in extremity [Recovered/Resolved]
  - Choking [None]
  - Multiple sclerosis relapse [None]
  - Speech disorder [Recovered/Resolved]
  - Hyperaesthesia [Recovered/Resolved]
  - Multiple sclerosis relapse [Recovered/Resolved]

NARRATIVE: CASE EVENT DATE: 201104
